FAERS Safety Report 5191334-4 (Version None)
Quarter: 2006Q4

REPORT INFORMATION
  Report Type: 
  Country: None (occurrence: None)
  Receive Date: 20061219
  Receipt Date: 20061213
  Transmission Date: 20070319
  Serious: Yes (Hospitalization)
  Sender: FDA-Public Use
  Company Number: TCI2006A05769

PATIENT
  Age: 85 Year
  Sex: Female

DRUGS (6)
  1. LANSAP 800 (LANSOPRAZOLE, CLARITHROMYCIN, AMOXICILLIN) (PREPARATION FO [Suspect]
     Indication: HELICOBACTER INFECTION
     Dosage: 1 CARD (0.5 CARD, 2 IN 1 D) PER ORAL
     Route: 048
     Dates: start: 20061127, end: 20061129
  2. DIOVAN [Concomitant]
  3. HALFDIGOXIN (DIGOXIN) (TABLETS) [Concomitant]
  4. ADALAT [Concomitant]
  5. GASMOTIN (MOSAPRIDE CITRATE) (TABLETS) [Concomitant]
  6. OMEPRAL (OMEPRAZOLE) (TABLETS) [Concomitant]

REACTIONS (2)
  - BACK PAIN [None]
  - RHABDOMYOLYSIS [None]
